FAERS Safety Report 7548271-7 (Version None)
Quarter: 2011Q2

REPORT INFORMATION
  Report Type: 
  Country: None (occurrence: None)
  Receive Date: 20110615
  Receipt Date: 20110609
  Transmission Date: 20111010
  Serious: No
  Sender: FDA-Public Use
  Company Number: US-PFIZER INC-2011127551

PATIENT
  Sex: Female
  Weight: 72.562 kg

DRUGS (3)
  1. PROTONIX [Suspect]
     Dosage: 40 MG, 2X/DAY
     Route: 048
     Dates: start: 20110608
  2. AVINZA [Concomitant]
     Indication: PAIN
     Dosage: 90 MG, DAILY
  3. PROTONIX [Suspect]
     Indication: GASTROOESOPHAGEAL REFLUX DISEASE
     Dosage: 40 MG, 2X/DAY
     Route: 048
     Dates: start: 20110501

REACTIONS (9)
  - INFLUENZA LIKE ILLNESS [None]
  - RESTLESS LEGS SYNDROME [None]
  - DYSKINESIA [None]
  - DISCOMFORT [None]
  - BONE PAIN [None]
  - FATIGUE [None]
  - PAIN [None]
  - INSOMNIA [None]
  - ASTHENIA [None]
